FAERS Safety Report 17654414 (Version 2)
Quarter: 2020Q4

REPORT INFORMATION
  Report Type: Spontaneous
  Country: US (occurrence: US)
  Receive Date: 20200410
  Receipt Date: 20201117
  Transmission Date: 20210113
  Serious: Yes (Other)
  Sender: FDA-Public Use
  Company Number: US-ASTRAZENECA-2020SE47429

PATIENT
  Age: 22072 Day
  Sex: Male
  Weight: 85.3 kg

DRUGS (38)
  1. PRILOSEC [Suspect]
     Active Substance: OMEPRAZOLE MAGNESIUM
     Indication: GASTROOESOPHAGEAL REFLUX DISEASE
     Dosage: GENERIC
     Route: 065
     Dates: start: 2010, end: 2017
  2. AMITRIPTYLINE [Concomitant]
     Active Substance: AMITRIPTYLINE
     Indication: NEURALGIA
     Dates: start: 2009
  3. BUMETANIDE. [Concomitant]
     Active Substance: BUMETANIDE
     Indication: BLOOD PRESSURE ABNORMAL
     Dates: start: 2009
  4. KETOROLAC [Concomitant]
     Active Substance: KETOROLAC TROMETHAMINE
     Indication: PAIN
     Dates: start: 2009
  5. BENADRYL [Concomitant]
     Active Substance: DIPHENHYDRAMINE HYDROCHLORIDE
     Indication: MULTIPLE ALLERGIES
     Dates: start: 2015
  6. ORPHENADRINE [Concomitant]
     Active Substance: ORPHENADRINE
  7. MEPERIDINE [Concomitant]
     Active Substance: MEPERIDINE
  8. HYDROMORPHONE [Concomitant]
     Active Substance: HYDROMORPHONE
  9. NEXIUM [Suspect]
     Active Substance: ESOMEPRAZOLE MAGNESIUM
     Indication: GASTROOESOPHAGEAL REFLUX DISEASE
     Route: 048
     Dates: start: 20090611, end: 2010
  10. CIPROFLOXACIN. [Concomitant]
     Active Substance: CIPROFLOXACIN
     Indication: INFECTION
     Dates: start: 2009
  11. AMOXICILLIN. [Concomitant]
     Active Substance: AMOXICILLIN
     Indication: INFECTION
     Dates: start: 2009
  12. TYLENOL [Concomitant]
     Active Substance: ACETAMINOPHEN
     Indication: PAIN
     Dates: start: 2016
  13. ACTOS [Concomitant]
     Active Substance: PIOGLITAZONE HYDROCHLORIDE
  14. NEXIUM [Suspect]
     Active Substance: ESOMEPRAZOLE MAGNESIUM
     Indication: GASTROOESOPHAGEAL REFLUX DISEASE
     Route: 048
     Dates: start: 2009
  15. LIPITOR [Concomitant]
     Active Substance: ATORVASTATIN CALCIUM
     Indication: BLOOD CHOLESTEROL ABNORMAL
     Dates: start: 2018
  16. HUMULIN NOS [Concomitant]
     Active Substance: INSULIN HUMAN
  17. CEFTRIAXONE SODIUM. [Concomitant]
     Active Substance: CEFTRIAXONE SODIUM
  18. FLUCONAZOLE. [Concomitant]
     Active Substance: FLUCONAZOLE
  19. BROMFED [Concomitant]
     Active Substance: BROMPHENIRAMINE MALEATE\DEXTROMETHORPHAN HYDROBROMIDE\PSEUDOEPHEDRINE HYDROCHLORIDE
  20. PRILOSEC [Suspect]
     Active Substance: OMEPRAZOLE MAGNESIUM
     Indication: GASTROOESOPHAGEAL REFLUX DISEASE
     Route: 048
     Dates: start: 1994, end: 2017
  21. AMITRIPTYLINE [Concomitant]
     Active Substance: AMITRIPTYLINE
     Indication: ANTIDEPRESSANT THERAPY
     Dates: start: 2009
  22. CLOPIDOGREL [Concomitant]
     Active Substance: CLOPIDOGREL BISULFATE
     Indication: ANTICOAGULANT THERAPY
     Dates: start: 2009, end: 2016
  23. ZANTAC [Concomitant]
     Active Substance: RANITIDINE HYDROCHLORIDE
     Dates: start: 2017
  24. NIZORAL [Concomitant]
     Active Substance: KETOCONAZOLE
  25. JANUMET [Concomitant]
     Active Substance: METFORMIN HYDROCHLORIDE\SITAGLIPTIN PHOSPHATE
  26. FUROSEMIDE. [Concomitant]
     Active Substance: FUROSEMIDE
     Indication: OEDEMA
     Dates: start: 2009
  27. AZITHROMYCIN ANHYDROUS. [Concomitant]
     Active Substance: AZITHROMYCIN ANHYDROUS
  28. SEVELAMER [Concomitant]
     Active Substance: SEVELAMER
  29. DOXYCYCLINE. [Concomitant]
     Active Substance: DOXYCYCLINE
     Indication: INFECTION
     Dates: start: 2009
  30. HYDROCODONE-ACETAMINOPHEN [Concomitant]
     Active Substance: ACETAMINOPHEN\HYDROCODONE
  31. BUMETANIDE. [Concomitant]
     Active Substance: BUMETANIDE
     Indication: OEDEMA
     Dates: start: 2009
  32. HYDRALAZINE [Concomitant]
     Active Substance: HYDRALAZINE HYDROCHLORIDE
     Indication: BLOOD PRESSURE ABNORMAL
     Dates: start: 2009
  33. NEURONTIN [Concomitant]
     Active Substance: GABAPENTIN
  34. PROMETHAZINE [Concomitant]
     Active Substance: PROMETHAZINE HYDROCHLORIDE
  35. LISINOPRIL. [Concomitant]
     Active Substance: LISINOPRIL
     Indication: BLOOD PRESSURE ABNORMAL
     Dates: start: 2009
  36. LISINOPRIL. [Concomitant]
     Active Substance: LISINOPRIL
     Indication: CARDIAC FAILURE
     Dates: start: 2009
  37. ONDASETRON [Concomitant]
     Active Substance: ONDANSETRON
  38. SPIRIVA [Concomitant]
     Active Substance: TIOTROPIUM BROMIDE MONOHYDRATE

REACTIONS (7)
  - Acute kidney injury [Not Recovered/Not Resolved]
  - Hyperparathyroidism secondary [Unknown]
  - Renal failure [Unknown]
  - Nephrogenic anaemia [Unknown]
  - Chronic kidney disease [Not Recovered/Not Resolved]
  - End stage renal disease [Not Recovered/Not Resolved]
  - Rebound acid hypersecretion [Unknown]

NARRATIVE: CASE EVENT DATE: 20100802
